FAERS Safety Report 9316604 (Version 1)
Quarter: 2013Q2

REPORT INFORMATION
  Report Type: Spontaneous
  Country: BR (occurrence: BR)
  Receive Date: 20130530
  Receipt Date: 20130530
  Transmission Date: 20140414
  Serious: Yes (Other)
  Sender: FDA-Public Use
  Company Number: BR-AMGEN-BRASP2013037973

PATIENT
  Age: 49 Year
  Sex: Male
  Weight: 70 kg

DRUGS (5)
  1. ENBREL [Suspect]
     Indication: RHEUMATOID ARTHRITIS
     Dosage: 50 MG, WEEKLY
     Dates: start: 20130514
  2. METHOTREXATE [Concomitant]
     Dosage: 7.5 MG (THREE TABLETS OF 2.5MG), ONCE WEEKLY
  3. FOLIC ACID [Concomitant]
     Dosage: UNK UNK, UNK
  4. METFORMIN [Concomitant]
     Dosage: UNK UNK, UNK
  5. GLICAMIN                           /00145301/ [Concomitant]
     Dosage: UNK UNK, UNK

REACTIONS (5)
  - Immunodeficiency [Recovering/Resolving]
  - Asthenia [Recovering/Resolving]
  - Dizziness [Recovering/Resolving]
  - Retching [Recovering/Resolving]
  - Feeling cold [Not Recovered/Not Resolved]
